FAERS Safety Report 14850651 (Version 1)
Quarter: 2018Q2

REPORT INFORMATION
  Report Type: Spontaneous
  Country: US (occurrence: US)
  Receive Date: 20180506
  Receipt Date: 20180506
  Transmission Date: 20180711
  Serious: No
  Sender: FDA-Public Use
  Company Number: US-IPSEN BIOPHARMACEUTICALS, INC.-2018-02263

PATIENT
  Sex: Male

DRUGS (1)
  1. SOMATULINE [Suspect]
     Active Substance: LANREOTIDE ACETATE
     Indication: CARCINOID SYNDROME
     Dosage: 60 MG
     Route: 058
     Dates: start: 2015

REACTIONS (2)
  - Tinnitus [Unknown]
  - Insomnia [Unknown]
